FAERS Safety Report 17252083 (Version 3)
Quarter: 2020Q2

REPORT INFORMATION
  Report Type: Spontaneous
  Country: US (occurrence: US)
  Receive Date: 20200109
  Receipt Date: 20200508
  Transmission Date: 20200713
  Serious: Yes (Hospitalization, Other)
  Sender: FDA-Public Use
  Company Number: US-CHIESI USA, INC.-US-2020CHI000005

PATIENT

DRUGS (8)
  1. KEPPRA [Concomitant]
     Active Substance: LEVETIRACETAM
     Indication: PRODUCT USED FOR UNKNOWN INDICATION
     Dosage: UNK, PRN
  2. BETHKIS [Suspect]
     Active Substance: TOBRAMYCIN
     Indication: OFF LABEL USE
  3. DIASTAT                            /00017001/ [Concomitant]
     Indication: PRODUCT USED FOR UNKNOWN INDICATION
     Dosage: UNK, PRN
  4. LORATADINE. [Concomitant]
     Active Substance: LORATADINE
     Indication: PRODUCT USED FOR UNKNOWN INDICATION
     Dosage: UNK
  5. MUCOMYST                           /00082802/ [Concomitant]
     Indication: PRODUCT USED FOR UNKNOWN INDICATION
     Dosage: UNK
  6. BETHKIS [Suspect]
     Active Substance: TOBRAMYCIN
     Indication: TRACHEOBRONCHITIS BACTERIAL
     Dosage: 300 MG, BID
     Route: 055
     Dates: start: 201803
  7. ALBUTEROL HFA [Concomitant]
     Active Substance: ALBUTEROL SULFATE
     Indication: PRODUCT USED FOR UNKNOWN INDICATION
     Dosage: UNK
  8. PREVACID [Concomitant]
     Active Substance: LANSOPRAZOLE
     Indication: PRODUCT USED FOR UNKNOWN INDICATION
     Dosage: UNK

REACTIONS (24)
  - Diarrhoea [Recovered/Resolved]
  - Rhinovirus infection [Recovered/Resolved]
  - Tracheitis [Recovered/Resolved]
  - Enterovirus infection [Recovered/Resolved]
  - Rhinovirus infection [Recovered/Resolved]
  - Vomiting [Recovered/Resolved]
  - Tracheitis [Recovered/Resolved]
  - Condition aggravated [Unknown]
  - Rhinovirus infection [Unknown]
  - Lower respiratory tract infection [Recovered/Resolved]
  - Lower respiratory tract infection [Recovered/Resolved]
  - Tracheitis [Unknown]
  - Off label use [Not Recovered/Not Resolved]
  - Chronic respiratory failure [Recovering/Resolving]
  - Seizure [Recovered/Resolved]
  - Rhinovirus infection [Recovered/Resolved]
  - Lower respiratory tract infection [Recovered/Resolved]
  - Developmental delay [Unknown]
  - Nasal congestion [Unknown]
  - Dehydration [Recovered/Resolved]
  - Rhinovirus infection [Recovered/Resolved]
  - Bronchitis [Recovering/Resolving]
  - Lower respiratory tract infection [Recovered/Resolved]
  - Tracheitis [Recovered/Resolved]

NARRATIVE: CASE EVENT DATE: 201803
